FAERS Safety Report 20164292 (Version 1)
Quarter: 2021Q4

REPORT INFORMATION
  Report Type: Spontaneous
  Country: PL (occurrence: PL)
  Receive Date: 20211209
  Receipt Date: 20211209
  Transmission Date: 20220303
  Serious: Yes (Hospitalization)
  Sender: FDA-Public Use
  Company Number: None

PATIENT
  Age: 81 Year
  Sex: Male
  Weight: 75 kg

DRUGS (5)
  1. PACLITAXEL [Suspect]
     Active Substance: PACLITAXEL
     Indication: Malignant respiratory tract neoplasm
     Route: 042
     Dates: start: 20210128, end: 20210128
  2. DOBROSON [Concomitant]
     Indication: Sleep disorder
     Dosage: DOSE: 1X7.5 MG
     Route: 048
     Dates: start: 20210128, end: 20210131
  3. SPIRIVA [Concomitant]
     Active Substance: TIOTROPIUM BROMIDE MONOHYDRATE
     Indication: Asthma
     Dosage: DOSE: 2X22.5 MCG. THERAPY ONGOING
     Route: 055
  4. MORPHINE SULFATE [Concomitant]
     Active Substance: MORPHINE SULFATE
     Indication: Malignant respiratory tract neoplasm
     Dosage: DOSE: 1X5 MG
     Route: 058
     Dates: start: 20210128, end: 20210201
  5. PULMICORT TURBUHALER [Concomitant]
     Active Substance: BUDESONIDE
     Indication: Asthma
     Dosage: DOSE: 2X0.2 MG. THERAPY ONGOING
     Route: 055

REACTIONS (2)
  - Resuscitation [Recovered/Resolved]
  - Cardiac arrest [Recovered/Resolved]

NARRATIVE: CASE EVENT DATE: 20210128
